FAERS Safety Report 5107938-0 (Version None)
Quarter: 2006Q3

REPORT INFORMATION
  Report Type: 
  Country: None (occurrence: None)
  Receive Date: 20060914
  Receipt Date: 20060906
  Transmission Date: 20061208
  Serious: Yes (Death, Hospitalization)
  Sender: FDA-Public Use
  Company Number: 2006JP002912

PATIENT
  Age: 64 Year
  Sex: Female
  Weight: 37 kg

DRUGS (20)
  1. TACROLIMUS CAPSULES (TACROLIMUS)CAPSULE [Suspect]
     Indication: RHEUMATOID ARTHRITIS
     Dosage: SEE IMAGE
     Route: 048
     Dates: start: 20060316, end: 20060712
  2. TACROLIMUS CAPSULES (TACROLIMUS)CAPSULE [Suspect]
     Indication: RHEUMATOID ARTHRITIS
     Dosage: SEE IMAGE
     Route: 048
     Dates: start: 20060713, end: 20060719
  3. PREDNISOLONE [Suspect]
     Dosage: SEE IMAGE
     Dates: start: 20030101, end: 20050101
  4. PREDNISOLONE [Suspect]
     Dosage: SEE IMAGE
     Dates: start: 20060512
  5. AZULFIDINE [Suspect]
     Dosage: 1000 MG, ORAL
     Route: 048
     Dates: start: 20060512
  6. MOBIC [Suspect]
     Dosage: 10 MG, ORAL
     Route: 048
     Dates: start: 20060512
  7. VOLTAREN [Suspect]
     Dosage: 25 MG, RECTAL
     Route: 054
     Dates: start: 20060512, end: 20060719
  8. ALFAROL (ALFACALCIDOL) PER ORAL NOS [Concomitant]
  9. WARFARIN SODIUM [Concomitant]
  10. KENACORT-A INJECTION [Concomitant]
  11. BONALON (ALENDRONIC ACID) PER ORAL NOS [Concomitant]
  12. SYMMETREL (AMANTADINE HYDROCHLORIDE) PER ORAL NOS [Concomitant]
  13. ALOSENN (TARAXACAM OFFICINALE, ACHILLEA MILLEFOLIUM, SENNA ALEXANDRINA [Concomitant]
  14. GASTER D ORODISPERSABLE CR TABLET [Concomitant]
  15. THEODUR PER ORAL NOS [Concomitant]
  16. SINGULAIR (MONTELUKAST SODIUM) PER ORAL NOS [Concomitant]
  17. HORIZON (DIAZEPAM) PER ORAL NOS [Concomitant]
  18. FLUTIDE (FLUTICASONE PROPIONATE) INHALATION [Concomitant]
  19. LUPRAC (TORASEMIDE) TABLET [Concomitant]
  20. DIGOXIN (BETA-ACETYLDIGOXIN) PER ORAL NOS [Concomitant]

REACTIONS (4)
  - HAEMORRHAGIC CEREBRAL INFARCTION [None]
  - LOSS OF CONSCIOUSNESS [None]
  - PNEUMONIA BACTERIAL [None]
  - STRESS ULCER [None]
